FAERS Safety Report 17906836 (Version 1)
Quarter: 2020Q2

REPORT INFORMATION
  Report Type: Spontaneous
  Country: US (occurrence: US)
  Receive Date: 20200617
  Receipt Date: 20200617
  Transmission Date: 20200714
  Serious: Yes (Hospitalization)
  Sender: FDA-Public Use
  Company Number: US-PFIZER INC-2020234702

PATIENT
  Age: 77 Year
  Sex: Male
  Weight: 60.33 kg

DRUGS (1)
  1. XALKORI [Suspect]
     Active Substance: CRIZOTINIB
     Indication: LUNG CARCINOMA CELL TYPE UNSPECIFIED STAGE IV
     Dosage: 400 MG, DAILY (200MG, 2 PILLS A DAY)
     Dates: start: 20200403, end: 20200511

REACTIONS (2)
  - Neoplasm progression [Unknown]
  - Haemoptysis [Recovered/Resolved with Sequelae]

NARRATIVE: CASE EVENT DATE: 2020
